FAERS Safety Report 15966047 (Version 1)
Quarter: 2019Q1

REPORT INFORMATION
  Report Type: Report from Study
  Country: FR (occurrence: FR)
  Receive Date: 20190215
  Receipt Date: 20190215
  Transmission Date: 20190418
  Serious: Yes (Other)
  Sender: FDA-Public Use
  Company Number: FR-AUROBINDO-AUR-APL-2019-008825

PATIENT

DRUGS (2)
  1. DORZOLAMIDE+TIMOLOL DROP [Suspect]
     Active Substance: DORZOLAMIDE HYDROCHLORIDE\TIMOLOL MALEATE
     Indication: PRODUCT USED FOR UNKNOWN INDICATION
     Dosage: UNK, TWO TIMES A DAY
  2. BRIMONIDINE [Suspect]
     Active Substance: BRIMONIDINE TARTRATE
     Indication: PRODUCT USED FOR UNKNOWN INDICATION
     Dosage: UNK, TWO TIMES A DAY

REACTIONS (7)
  - Toxicity to various agents [Unknown]
  - Ocular surface disease [Recovering/Resolving]
  - Meibomian gland dysfunction [Unknown]
  - Corneal neovascularisation [Recovering/Resolving]
  - Open angle glaucoma [Recovering/Resolving]
  - Hyperaemia [Recovering/Resolving]
  - Drug ineffective [Unknown]
